FAERS Safety Report 9434608 (Version 2)
Quarter: 2013Q3

REPORT INFORMATION
  Report Type: Spontaneous
  Country: US (occurrence: US)
  Receive Date: 20130801
  Receipt Date: 20130806
  Transmission Date: 20140515
  Serious: No
  Sender: FDA-Public Use
  Company Number: US-PFIZER INC-2013196708

PATIENT
  Age: 80 Year
  Sex: Male
  Weight: 85.26 kg

DRUGS (3)
  1. FLECTOR [Suspect]
     Indication: INFLAMMATION
     Dosage: 1 DF, 2X/DAY(1 EVERY 12 H)
     Route: 061
     Dates: start: 20130626, end: 20130701
  2. FLECTOR [Suspect]
     Indication: CHEST PAIN
  3. ULTRAM [Concomitant]
     Indication: PAIN
     Dosage: 1 BID
     Dates: start: 20130626

REACTIONS (3)
  - Product quality issue [Unknown]
  - Wrong technique in drug usage process [Unknown]
  - Drug ineffective [Unknown]
